FAERS Safety Report 7753664-9 (Version None)
Quarter: 2011Q3

REPORT INFORMATION
  Report Type: 
  Country: None (occurrence: None)
  Receive Date: 20110915
  Receipt Date: 20110915
  Transmission Date: 20111222
  Serious: No
  Sender: FDA-Public Use
  Company Number: None

PATIENT
  Sex: Female
  Weight: 80.739 kg

DRUGS (1)
  1. AVELOX [Suspect]
     Indication: BRONCHITIS
     Dosage: 400MG
     Route: 048
     Dates: start: 20110609, end: 20110613

REACTIONS (4)
  - TREMOR [None]
  - DIZZINESS [None]
  - NAUSEA [None]
  - CARDIAC DISORDER [None]
